FAERS Safety Report 9753770 (Version 2)
Quarter: 2013Q4

REPORT INFORMATION
  Report Type: Spontaneous
  Country: US (occurrence: US)
  Receive Date: 20131213
  Receipt Date: 20131213
  Transmission Date: 20140711
  Serious: No
  Sender: FDA-Public Use
  Company Number: US-GILEAD-2010-0026645

PATIENT
  Age: 81 Year
  Sex: Female
  Weight: 65 kg

DRUGS (10)
  1. LETAIRIS [Suspect]
     Indication: PULMONARY ARTERIAL HYPERTENSION
     Route: 048
     Dates: start: 20091229
  2. LETAIRIS [Suspect]
     Route: 048
     Dates: start: 20091125, end: 20091130
  3. ASA [Concomitant]
  4. HCTZ [Concomitant]
  5. COZAAR [Concomitant]
  6. DILTIAZEM [Concomitant]
  7. PRILOSEC [Concomitant]
  8. BONIVA [Concomitant]
  9. POTASSIUM [Concomitant]
  10. ERGOCALCIFER [Concomitant]

REACTIONS (4)
  - Heart rate irregular [Recovered/Resolved]
  - Weight increased [Unknown]
  - Increased upper airway secretion [Not Recovered/Not Resolved]
  - Palpitations [Recovered/Resolved]
